FAERS Safety Report 10572181 (Version 1)
Quarter: 2014Q4

REPORT INFORMATION
  Report Type: Spontaneous
  Country: ES (occurrence: ES)
  Receive Date: 20141108
  Receipt Date: 20141108
  Transmission Date: 20150529
  Serious: Yes (Hospitalization, Other)
  Sender: FDA-Public Use
  Company Number: ES-ASTRAZENECA-2014SE82991

PATIENT
  Age: 80 Year
  Sex: Male

DRUGS (8)
  1. SIMVASTATIN. [Concomitant]
     Active Substance: SIMVASTATIN
     Indication: DYSLIPIDAEMIA
     Dosage: DAILY
     Route: 048
     Dates: start: 2011
  2. BRILIQUE [Suspect]
     Active Substance: TICAGRELOR
     Route: 048
     Dates: start: 20130906, end: 20131224
  3. ADIRO (NON-AZ PRODUCT) [Interacting]
     Active Substance: ASPIRIN
     Dosage: DAILY
     Route: 048
     Dates: start: 20130916, end: 20131224
  4. OMEPRAZOLE. [Concomitant]
     Active Substance: OMEPRAZOLE
     Indication: PROPHYLAXIS AGAINST GASTROINTESTINAL ULCER
     Route: 048
     Dates: start: 20130916
  5. BISOPROLOL [Concomitant]
     Active Substance: BISOPROLOL
     Indication: HYPERTENSION
     Dosage: DAILY
     Route: 048
     Dates: start: 20130916
  6. PENTOXIFYLLINE. [Concomitant]
     Active Substance: PENTOXIFYLLINE
     Indication: PERIPHERAL VENOUS DISEASE
     Dosage: DAILY
     Route: 048
     Dates: start: 2011
  7. DUODART [Concomitant]
     Active Substance: DUTASTERIDE\TAMSULOSIN
     Indication: BENIGN PROSTATIC HYPERPLASIA
     Dosage: 0.5/0.4 MG DAILY
     Route: 048
     Dates: start: 2011
  8. PLUSVENT [Concomitant]
     Active Substance: FLUTICASONE PROPIONATE\SALMETEROL XINAFOATE
     Indication: CHRONIC OBSTRUCTIVE PULMONARY DISEASE
     Dosage: 25 MCG/125 MCG/INHALATION, INHALATION SUSPENSION PRESSURIZED CONTAINER, 1 INHALER OF 120 DOSES DAILY
     Route: 055
     Dates: start: 2013

REACTIONS (7)
  - Haemangioma [Unknown]
  - Cardiovascular disorder [Unknown]
  - Anaemia [Recovered/Resolved]
  - Angina pectoris [Unknown]
  - Drug interaction [Unknown]
  - Large intestine polyp [Unknown]
  - Dyspnoea exertional [Unknown]

NARRATIVE: CASE EVENT DATE: 20131224
